FAERS Safety Report 17581347 (Version 1)
Quarter: 2020Q1

REPORT INFORMATION
  Report Type: Spontaneous
  Country: US (occurrence: US)
  Receive Date: 20200325
  Receipt Date: 20200325
  Transmission Date: 20200409
  Serious: No
  Sender: FDA-Public Use
  Company Number: None

PATIENT
  Age: 77 Year
  Sex: Female
  Weight: 56.5 kg

DRUGS (8)
  1. DEXAMETHASONE. [Concomitant]
     Active Substance: DEXAMETHASONE
     Dates: start: 20200309
  2. LEUCOVORIN. [Concomitant]
     Active Substance: LEUCOVORIN
     Dates: start: 20200309
  3. BEVACIZUMAB. [Concomitant]
     Active Substance: BEVACIZUMAB
     Dates: start: 20200323
  4. FLUOROURACIL. [Concomitant]
     Active Substance: FLUOROURACIL
     Dates: start: 20200309
  5. DIPHENHYDRAMINE. [Concomitant]
     Active Substance: DIPHENHYDRAMINE
     Dates: start: 20200323
  6. OXALIPLATIN. [Suspect]
     Active Substance: OXALIPLATIN
     Indication: COLON CANCER
     Dosage: ?          OTHER FREQUENCY:EVERY 2 WEEKS;?
     Route: 042
     Dates: start: 20200309
  7. APREPITANT. [Concomitant]
     Active Substance: APREPITANT
     Dates: start: 20200323
  8. PALONOSETRON. [Concomitant]
     Active Substance: PALONOSETRON HYDROCHLORIDE
     Dates: start: 20200323

REACTIONS (2)
  - Flushing [None]
  - Pruritus [None]

NARRATIVE: CASE EVENT DATE: 20200323
